FAERS Safety Report 4689943-1 (Version None)
Quarter: 2005Q2

REPORT INFORMATION
  Report Type: 
  Country: None (occurrence: None)
  Receive Date: 20050608
  Receipt Date: 20050415
  Transmission Date: 20051028
  Serious: No
  Sender: FDA-Public Use
  Company Number: 2005-BP-06336BP

PATIENT
  Sex: Male

DRUGS (2)
  1. SPIRIVA [Suspect]
     Dosage: (18 MCG) , IH
     Route: 055
  2. ADVAIR DISKUS 100/50 [Concomitant]

REACTIONS (1)
  - RASH [None]
